FAERS Safety Report 8556844-8 (Version None)
Quarter: 2012Q3

REPORT INFORMATION
  Report Type: 
  Country: None (occurrence: None)
  Receive Date: 20120801
  Receipt Date: 20120723
  Transmission Date: 20120928
  Serious: Yes (Hospitalization)
  Sender: FDA-Public Use
  Company Number: FR-VERTEX PHARMACEUTICALS INC.-000000000000001275

PATIENT
  Sex: Male
  Weight: 60 kg

DRUGS (2)
  1. INCIVO [Suspect]
     Dosage: DOSAGE FORM: TABLET
     Route: 048
  2. INCIVO [Suspect]
     Indication: HEPATITIS C
     Dosage: DOSAGE FORM: TABLET
     Route: 048
     Dates: start: 20120626

REACTIONS (3)
  - DRUG PRESCRIBING ERROR [None]
  - OFF LABEL USE [None]
  - RASH ERYTHEMATOUS [None]
